FAERS Safety Report 7293438-9 (Version None)
Quarter: 2011Q1

REPORT INFORMATION
  Report Type: 
  Country: None (occurrence: None)
  Receive Date: 20110215
  Receipt Date: 20110209
  Transmission Date: 20110831
  Serious: No
  Sender: FDA-Public Use
  Company Number: US-PFIZER INC-US-WYE-H16977510

PATIENT
  Sex: Female

DRUGS (2)
  1. PRISTIQ [Suspect]
     Dosage: UNK
  2. TYLENOL [Suspect]
     Dosage: UNK

REACTIONS (5)
  - POOR QUALITY SLEEP [None]
  - DRUG INEFFECTIVE [None]
  - HEADACHE [None]
  - NECK PAIN [None]
  - BACK PAIN [None]
